FAERS Safety Report 8996028 (Version 1)
Quarter: 2013Q1

REPORT INFORMATION
  Report Type: Spontaneous
  Country: US (occurrence: US)
  Receive Date: 20130103
  Receipt Date: 20130103
  Transmission Date: 20140127
  Serious: No
  Sender: FDA-Public Use
  Company Number: US-ABBOTT-12P-163-0962678-00

PATIENT
  Sex: Male
  Weight: 102.15 kg

DRUGS (2)
  1. SYNTHROID [Suspect]
     Indication: HYPOTHYROIDISM
  2. TAMSULOSIN [Concomitant]
     Indication: PRODUCT USED FOR UNKNOWN INDICATION

REACTIONS (3)
  - Pharyngitis streptococcal [Recovering/Resolving]
  - Oropharyngeal pain [Recovering/Resolving]
  - Tonsillar hypertrophy [Recovering/Resolving]
